FAERS Safety Report 6957250-X (Version None)
Quarter: 2010Q3

REPORT INFORMATION
  Report Type: 
  Country: None (occurrence: None)
  Receive Date: 20100831
  Receipt Date: 20100820
  Transmission Date: 20110219
  Serious: Yes (Disabling)
  Sender: FDA-Public Use
  Company Number: DE-EISAI INC.-E3810-03936-SPO-DE

PATIENT
  Sex: Male
  Weight: 75 kg

DRUGS (1)
  1. PARIET (RABEPRAZOLE) [Suspect]
     Indication: REFLUX OESOPHAGITIS
     Route: 048
     Dates: start: 20050101

REACTIONS (2)
  - CHOLESTASIS [None]
  - POLYNEUROPATHY [None]
